FAERS Safety Report 17016733 (Version 4)
Quarter: 2020Q2

REPORT INFORMATION
  Report Type: Other
  Country: NL (occurrence: NL)
  Receive Date: 20191111
  Receipt Date: 20200417
  Transmission Date: 20200713
  Serious: Yes (Hospitalization)
  Sender: FDA-Public Use
  Company Number: NL-ASPEN-GLO2019NL011659

PATIENT
  Age: 70 Year
  Sex: Male
  Weight: 70.6 kg

DRUGS (12)
  1. DEXAMETHASONE. [Suspect]
     Active Substance: DEXAMETHASONE
     Dosage: 40 MG
     Route: 048
     Dates: start: 20190827, end: 20191005
  2. VELCADE [Suspect]
     Active Substance: BORTEZOMIB
     Indication: PLASMA CELL MYELOMA
     Dosage: 2.6 MG
     Route: 058
     Dates: start: 20190827, end: 20191007
  3. DARATUMUMAB [Suspect]
     Active Substance: DARATUMUMAB
     Indication: PLASMA CELL MYELOMA
     Dosage: MEDKIT NO. BE19800387
     Route: 058
     Dates: start: 20190827, end: 20191007
  4. DALTEPARIN [Concomitant]
     Active Substance: DALTEPARIN
     Indication: PROPHYLAXIS
     Dosage: 0.2 ML, QD
     Route: 058
     Dates: start: 201908
  5. PARACETAMOL [Concomitant]
     Active Substance: ACETAMINOPHEN
     Indication: PAIN PROPHYLAXIS
     Dosage: 1000 MG
     Route: 048
     Dates: start: 201908
  6. OMEPRAZOLE. [Concomitant]
     Active Substance: OMEPRAZOLE
     Indication: PROPHYLAXIS
     Dosage: 20 MG, QD
     Route: 048
     Dates: start: 201908
  7. DARATUMUMAB [Suspect]
     Active Substance: DARATUMUMAB
     Dosage: MEDKIT NO. BE19800387
     Route: 058
     Dates: start: 20190827, end: 20191001
  8. BENZBROMARONE [Concomitant]
     Active Substance: BENZBROMARONE
     Indication: ARTHRITIS
     Dosage: 100 MG, QD
     Route: 048
     Dates: start: 2000
  9. VELCADE [Suspect]
     Active Substance: BORTEZOMIB
     Dosage: MEDKIT NO. BE19800472
     Route: 058
     Dates: start: 20190827, end: 20191004
  10. LENALIDOMIDE [Suspect]
     Active Substance: LENALIDOMIDE
     Dosage: MEDIKIT NO. 2578AB
     Route: 048
     Dates: start: 20190827, end: 20191007
  11. LENALIDOMIDE [Suspect]
     Active Substance: LENALIDOMIDE
     Indication: PLASMA CELL MYELOMA
     Dosage: MEDIKIT NO. 2578AB
     Route: 048
     Dates: start: 20190827, end: 20191006
  12. DEXAMETHASONE. [Suspect]
     Active Substance: DEXAMETHASONE
     Indication: PLASMA CELL MYELOMA
     Dosage: 40 MG
     Route: 048
     Dates: start: 20190827, end: 20191007

REACTIONS (2)
  - Orthostatic hypotension [Recovered/Resolved]
  - Dizziness [Recovered/Resolved]

NARRATIVE: CASE EVENT DATE: 20191007
